FAERS Safety Report 16617443 (Version 3)
Quarter: 2019Q3

REPORT INFORMATION
  Report Type: Spontaneous
  Country: ES (occurrence: ES)
  Receive Date: 20190723
  Receipt Date: 20190911
  Transmission Date: 20191004
  Serious: Yes (Other)
  Sender: FDA-Public Use
  Company Number: ES-SA-2019SA163022

PATIENT

DRUGS (1)
  1. AUBAGIO [Suspect]
     Active Substance: TERIFLUNOMIDE
     Route: 048

REACTIONS (5)
  - Balance disorder [Recovering/Resolving]
  - Hyporeflexia [Recovering/Resolving]
  - Multiple sclerosis [Unknown]
  - Demyelinating polyneuropathy [Recovering/Resolving]
  - Dysmetria [Recovering/Resolving]

NARRATIVE: CASE EVENT DATE: 20190315
